FAERS Safety Report 10770789 (Version 1)
Quarter: 2015Q1

REPORT INFORMATION
  Report Type: Spontaneous
  Country: US (occurrence: None)
  Receive Date: 20150204
  Receipt Date: 20150204
  Transmission Date: 20150721
  Serious: Yes (Death)
  Sender: FDA-Public Use
  Company Number: 2729160

PATIENT
  Age: 31 Year
  Sex: Male

DRUGS (10)
  1. TRAMADOL [Suspect]
     Active Substance: TRAMADOL
     Dates: start: 2013, end: 2013
  2. DIPHENHYDRAMINE [Suspect]
     Active Substance: DIPHENHYDRAMINE
     Dates: start: 2013, end: 2013
  3. CODEINE [Suspect]
     Active Substance: CODEINE
     Dates: start: 2013, end: 2013
  4. FLUOXETINE [Suspect]
     Active Substance: FLUOXETINE\FLUOXETINE HYDROCHLORIDE
  5. CLONAZEPAM. [Suspect]
     Active Substance: CLONAZEPAM
     Dates: start: 2013, end: 2013
  6. LAMOTRIGINE. [Suspect]
     Active Substance: LAMOTRIGINE
     Dates: start: 2013, end: 2013
  7. HEROIN [Suspect]
     Active Substance: DIACETYLMORPHINE
     Dates: start: 2013, end: 2013
  8. METHADONE [Suspect]
     Active Substance: METHADONE HYDROCHLORIDE
     Dates: start: 2013, end: 2013
  9. AMPHETAMINE [Suspect]
     Active Substance: AMPHETAMINE
     Dates: start: 2013, end: 2013
  10. QUININE [Suspect]
     Active Substance: QUININE
     Dates: start: 2013, end: 2013

REACTIONS (2)
  - Drug abuse [None]
  - Poisoning [None]

NARRATIVE: CASE EVENT DATE: 2013
